FAERS Safety Report 12672260 (Version 1)
Quarter: 2016Q3

REPORT INFORMATION
  Report Type: Spontaneous
  Country: CN (occurrence: CN)
  Receive Date: 20160822
  Receipt Date: 20160822
  Transmission Date: 20161109
  Serious: Yes (Other)
  Sender: FDA-Public Use
  Company Number: CN-PFIZER INC-2016393759

PATIENT

DRUGS (1)
  1. VFEND [Suspect]
     Active Substance: VORICONAZOLE
     Indication: BONE MARROW TRANSPLANT
     Dosage: UNK
     Route: 048

REACTIONS (3)
  - Unresponsive to stimuli [Unknown]
  - Speech disorder [Unknown]
  - Hallucination [Unknown]

NARRATIVE: CASE EVENT DATE: 20160312
